FAERS Safety Report 11079081 (Version 1)
Quarter: 2015Q2

REPORT INFORMATION
  Report Type: Spontaneous
  Country: KR (occurrence: None)
  Receive Date: 20150428
  Receipt Date: 20150428
  Transmission Date: 20150821
  Serious: Yes (Death)
  Sender: FDA-Public Use
  Company Number: INT_00738_2015

PATIENT
  Age: 64 Year
  Sex: Male

DRUGS (3)
  1. CHEMORADIATION THERAPY [Suspect]
     Active Substance: UNSPECIFIED INGREDIENT
     Indication: NON-SMALL CELL LUNG CANCER STAGE IIIA
     Dosage: (2 GY/DAY) (68 GY TOTAL)
     Dates: start: 2011, end: 2011
  2. CARBOPLATIN. [Suspect]
     Active Substance: CARBOPLATIN
     Indication: NON-SMALL CELL LUNG CANCER STAGE IIIA
     Dosage: (AUC 2, WEEKLY)
     Dates: start: 2011, end: 2011
  3. PACLITAXEL (PACLITAXEL) (HQ SPECIALTY) [Suspect]
     Active Substance: PACLITAXEL
     Indication: NON-SMALL CELL LUNG CANCER STAGE IIIA
     Dosage: (50 MG/M2 1X/WEEK)
     Dates: start: 2011, end: 2011

REACTIONS (5)
  - Drug effect incomplete [None]
  - Haemoptysis [None]
  - Haemoglobin decreased [None]
  - Pneumonia aspiration [None]
  - Vascular pseudoaneurysm [None]
